FAERS Safety Report 7048625-1 (Version None)
Quarter: 2010Q4

REPORT INFORMATION
  Report Type: 
  Country: None (occurrence: None)
  Receive Date: 20101018
  Receipt Date: 20100914
  Transmission Date: 20110411
  Serious: Yes (Hospitalization, Other)
  Sender: FDA-Public Use
  Company Number: US-BAYER-201024129NA

PATIENT
  Age: 67 Year
  Sex: Female
  Weight: 82 kg

DRUGS (10)
  1. AVELOX [Suspect]
     Indication: SINOBRONCHITIS
     Dosage: AS USED: 400 MG  UNIT DOSE: 400 MG
     Route: 048
     Dates: start: 20090901, end: 20090901
  2. HORMONES [Concomitant]
  3. LYRICA [Concomitant]
  4. SYNTHROID [Concomitant]
  5. FISH OIL [Concomitant]
  6. CALCIUM [Concomitant]
  7. RED RICE YEAST [Concomitant]
  8. NORVASC [Concomitant]
  9. CALCIUM SUPPLEMENTS [Concomitant]
  10. OGEN [Concomitant]

REACTIONS (12)
  - APHAGIA [None]
  - AUTOIMMUNE HEPATITIS [None]
  - CHOLESTASIS [None]
  - DYSPEPSIA [None]
  - FOOD AVERSION [None]
  - GASTRIC DISORDER [None]
  - HEPATITIS [None]
  - INSOMNIA [None]
  - JAUNDICE CHOLESTATIC [None]
  - LIVER INJURY [None]
  - MALAISE [None]
  - WEIGHT DECREASED [None]
